FAERS Safety Report 7588479-8 (Version None)
Quarter: 2011Q3

REPORT INFORMATION
  Report Type: 
  Country: None (occurrence: None)
  Receive Date: 20110705
  Receipt Date: 20110629
  Transmission Date: 20111222
  Serious: Yes (Life-Threatening, Hospitalization, Other)
  Sender: FDA-Public Use
  Company Number: BR-PFIZER INC-2011118705

PATIENT
  Age: 65 Year
  Sex: Female

DRUGS (5)
  1. LEXAPRO [Concomitant]
     Dosage: 10 MG
  2. LYRICA [Suspect]
     Indication: BIPOLAR DISORDER
     Dosage: 75 MG (ONE CAPSULE), 1X/DAY
     Route: 048
     Dates: start: 20110501, end: 20110101
  3. LYRICA [Suspect]
     Indication: DEPRESSION
  4. LYRICA [Suspect]
     Indication: ANXIETY
  5. OLCADIL [Concomitant]
     Dosage: UNK

REACTIONS (7)
  - THROMBOSIS [None]
  - OEDEMA PERIPHERAL [None]
  - COMA [None]
  - MUSCULAR WEAKNESS [None]
  - SINUS BRADYCARDIA [None]
  - RENAL DISORDER [None]
  - RENAL FAILURE [None]
